FAERS Safety Report 24400912 (Version 1)
Quarter: 2024Q4

REPORT INFORMATION
  Report Type: Spontaneous
  Country: US (occurrence: US)
  Receive Date: 20241006
  Receipt Date: 20241006
  Transmission Date: 20250115
  Serious: No
  Sender: SANOFI AVENTIS
  Company Number: US-SA-2024SA279204

PATIENT
  Age: 62 Year

DRUGS (1)
  1. ELITEK [Suspect]
     Active Substance: RASBURICASE
     Indication: Follicular lymphoma
     Dosage: 20 MG, TWICE
     Route: 042

REACTIONS (1)
  - Off label use [Unknown]
